FAERS Safety Report 8827966 (Version 1)
Quarter: 2012Q4

REPORT INFORMATION
  Report Type: 
  Country: CZ (occurrence: CZ)
  Receive Date: 20121005
  Receipt Date: 20121005
  Transmission Date: 20130627
  Serious: Yes (Hospitalization)
  Sender: FDA-Public Use
  Company Number: CZ-TEVA-360924ISR

PATIENT
  Age: 22 Year
  Sex: Female

DRUGS (2)
  1. DOXYCYCLINE HYCLATE [Suspect]
     Dosage: 200 Milligram Daily;
     Route: 048
     Dates: start: 20120906, end: 20120907
  2. ETHINYL ESTRADIOL\ETONOGESTREL [Concomitant]
     Dates: start: 2009

REACTIONS (5)
  - Dermatitis allergic [Unknown]
  - Erythema [Unknown]
  - Headache [Unknown]
  - Chills [Unknown]
  - Epistaxis [Unknown]
